FAERS Safety Report 17384634 (Version 1)
Quarter: 2020Q1

REPORT INFORMATION
  Report Type: Spontaneous
  Country: US (occurrence: US)
  Receive Date: 20200206
  Receipt Date: 20200206
  Transmission Date: 20200409
  Serious: No
  Sender: FDA-Public Use
  Company Number: US-ABBVIE-19K-163-3174223-00

PATIENT
  Sex: Male

DRUGS (2)
  1. HUMIRA [Suspect]
     Active Substance: ADALIMUMAB
     Indication: COLITIS ULCERATIVE
     Route: 058
     Dates: start: 2016
  2. HUMIRA [Suspect]
     Active Substance: ADALIMUMAB
     Indication: ANKYLOSING SPONDYLITIS

REACTIONS (7)
  - Pain in extremity [Unknown]
  - Device issue [Not Recovered/Not Resolved]
  - General physical condition abnormal [Unknown]
  - Gastrointestinal disorder [Unknown]
  - Rosacea [Unknown]
  - Incorrect dose administered [Not Recovered/Not Resolved]
  - Fat tissue decreased [Not Recovered/Not Resolved]
